FAERS Safety Report 22022723 (Version 3)
Quarter: 2023Q1

REPORT INFORMATION
  Report Type: Spontaneous
  Country: US (occurrence: US)
  Receive Date: 20230222
  Receipt Date: 20230310
  Transmission Date: 20230417
  Serious: Yes (Other)
  Sender: FDA-Public Use
  Company Number: US-PFIZER INC-202300076088

PATIENT
  Age: 85 Year
  Sex: Female

DRUGS (1)
  1. XELJANZ [Suspect]
     Active Substance: TOFACITINIB CITRATE
     Indication: Rheumatoid arthritis
     Dosage: UNK
     Dates: start: 2018

REACTIONS (8)
  - Hip arthroplasty [Unknown]
  - Coeliac disease [Unknown]
  - Osteoporosis [Unknown]
  - Fall [Unknown]
  - Cervical vertebral fracture [Unknown]
  - Ankle fracture [Unknown]
  - Osteoarthritis [Unknown]
  - Joint injury [Unknown]
